FAERS Safety Report 4821776-5 (Version None)
Quarter: 2005Q4

REPORT INFORMATION
  Report Type: 
  Country: None (occurrence: None)
  Receive Date: 20051103
  Receipt Date: 20051018
  Transmission Date: 20060501
  Serious: Yes (Other)
  Sender: FDA-Public Use
  Company Number: US155142

PATIENT
  Age: 37 Year
  Sex: Male

DRUGS (1)
  1. ENBREL [Suspect]
     Indication: POLYARTHRITIS

REACTIONS (4)
  - LUPUS NEPHRITIS [None]
  - OFF LABEL USE [None]
  - RENAL FAILURE ACUTE [None]
  - URINARY SEDIMENT PRESENT [None]
